FAERS Safety Report 20980765 (Version 2)
Quarter: 2022Q2

REPORT INFORMATION
  Report Type: Report from Study
  Country: CA (occurrence: CA)
  Receive Date: 20220620
  Receipt Date: 20220628
  Transmission Date: 20220720
  Serious: Yes (Other)
  Sender: FDA-Public Use
  Company Number: CA-JNJFOC-20220631964

PATIENT
  Age: 13 Year
  Sex: Male
  Weight: 86 kg

DRUGS (2)
  1. REMICADE [Suspect]
     Active Substance: INFLIXIMAB
     Indication: Crohn^s disease
     Dosage: 05 UNITS INVOLVED IN COMPLAINTS. STRENGTH 10 MG/ML
     Route: 040
     Dates: start: 20210519
  2. REMICADE [Suspect]
     Active Substance: INFLIXIMAB
     Route: 042

REACTIONS (4)
  - Pneumonia [Recovered/Resolved]
  - Influenza [Recovered/Resolved]
  - Agitation [Not Recovered/Not Resolved]
  - Logorrhoea [Not Recovered/Not Resolved]

NARRATIVE: CASE EVENT DATE: 20220401
